FAERS Safety Report 8962858 (Version 1)
Quarter: 2012Q4

REPORT INFORMATION
  Report Type: 
  Country: US (occurrence: US)
  Receive Date: 20121214
  Receipt Date: 20121214
  Transmission Date: 20130627
  Serious: Yes (Hospitalization, Disabling)
  Sender: FDA-Public Use
  Company Number: US-PFIZER INC-2012312132

PATIENT
  Age: 55 Year
  Sex: Female
  Weight: 58.96 kg

DRUGS (7)
  1. LYRICA [Suspect]
     Indication: LUPUS ERYTHEMATOSUS
     Dosage: 75 mg, 2x/day
  2. CELEBREX [Suspect]
     Indication: LUPUS ERYTHEMATOSUS
     Dosage: 200 mg, daily
  3. PLAQUENIL [Suspect]
     Indication: LUPUS ERYTHEMATOSUS
     Dosage: 200 mg, daily
  4. PLAQUENIL [Suspect]
     Indication: ASTHMA
  5. CYMBALTA [Concomitant]
     Dosage: 60 mg, daily
  6. SYNTHROID [Concomitant]
     Indication: THYROID DISORDER
     Dosage: 137 ug, daily
  7. ATENOLOL [Concomitant]
     Indication: BLOOD PRESSURE HIGH
     Dosage: 100 mg, 2x/day

REACTIONS (6)
  - Pain [Recovered/Resolved]
  - Activities of daily living impaired [Recovered/Resolved]
  - Malaise [Recovered/Resolved]
  - Asthenia [Recovered/Resolved]
  - Joint swelling [Recovered/Resolved]
  - Drug ineffective [Unknown]
